FAERS Safety Report 6872223-3 (Version None)
Quarter: 2010Q3

REPORT INFORMATION
  Report Type: 
  Country: None (occurrence: None)
  Receive Date: 20100721
  Receipt Date: 20090113
  Transmission Date: 20110219
  Serious: No
  Sender: FDA-Public Use
  Company Number: WAES 0902USA01583

PATIENT
  Age: 63 Year
  Sex: Male

DRUGS (4)
  1. PROSCAR [Suspect]
     Indication: BENIGN PROSTATIC HYPERPLASIA
     Dosage: PO
     Route: 048
     Dates: start: 20081212, end: 20081224
  2. PROSCAR [Suspect]
     Indication: BENIGN PROSTATIC HYPERPLASIA
     Dosage: PO
     Route: 048
     Dates: start: 20081225, end: 20081228
  3. PROSCAR [Suspect]
     Indication: BENIGN PROSTATIC HYPERPLASIA
     Dosage: 5 MG/ DAILY/ PO
     Route: 048
     Dates: start: 20081229, end: 20081229
  4. LISINOPRIL [Concomitant]

REACTIONS (6)
  - ANXIETY [None]
  - INSOMNIA [None]
  - PRURITUS GENERALISED [None]
  - THINKING ABNORMAL [None]
  - TINNITUS [None]
  - TREMOR [None]
